FAERS Safety Report 8362484-6 (Version None)
Quarter: 2012Q2

REPORT INFORMATION
  Report Type: 
  Country: None (occurrence: None)
  Receive Date: 20120514
  Receipt Date: 20120514
  Transmission Date: 20120825
  Serious: Yes (Other)
  Sender: FDA-Public Use
  Company Number: None

PATIENT
  Age: 28 Year
  Sex: Female
  Weight: 92.9874 kg

DRUGS (1)
  1. DEPO-PROVERA [Suspect]
     Indication: CONTRACEPTION
     Dosage: VIAL EVERY 3 MONTHS ID
     Route: 023

REACTIONS (7)
  - HOT FLUSH [None]
  - INSOMNIA [None]
  - NAUSEA [None]
  - DRY SKIN [None]
  - URTICARIA [None]
  - SEBORRHOEA [None]
  - AMENORRHOEA [None]
